FAERS Safety Report 20203203 (Version 2)
Quarter: 2021Q4

REPORT INFORMATION
  Report Type: Spontaneous
  Country: US (occurrence: US)
  Receive Date: 20211218
  Receipt Date: 20211222
  Transmission Date: 20220303
  Serious: No
  Sender: FDA-Public Use
  Company Number: US-NOVARTISTESTPH-NVSC2021US283647

PATIENT
  Sex: Female
  Weight: 3.72 kg

DRUGS (8)
  1. INFUVITE PEDIATRIC [Suspect]
     Active Substance: .ALPHA.-TOCOPHEROL ACETATE\ASCORBIC ACID\BIOTIN\CHOLECALCIFEROL\CYANOCOBALAMIN\DEXPANTHENOL\FOLIC AC
     Indication: Product used for unknown indication
     Dosage: 5.17 ML, (60 SYRING) (SEQ 4)
     Route: 065
  2. FOLIC ACID [Suspect]
     Active Substance: FOLIC ACID
     Indication: Product used for unknown indication
     Dosage: 2.92 ML
     Route: 065
  3. HEPARIN SODIUM\SODIUM CHLORIDE [Suspect]
     Active Substance: HEPARIN SODIUM\SODIUM CHLORIDE
     Indication: Product used for unknown indication
     Dosage: 0.3 ML, (1000 U/ML)
     Route: 065
  4. CALCIUM GLUCONATE [Suspect]
     Active Substance: CALCIUM GLUCONATE
     Indication: Product used for unknown indication
     Dosage: 1.98 ML, (0.465 MEQ/ML, 50 VIAL) (SEQ 9)
     Route: 065
  5. DEXTROSE [Suspect]
     Active Substance: DEXTROSE
     Indication: Product used for unknown indication
     Dosage: 132.86 ML, (BAG SEQ 6 AND 10)
     Route: 065
  6. POTASSIUM PHOSPHATE [Suspect]
     Active Substance: POTASSIUM PHOSPHATE
     Indication: Product used for unknown indication
     Dosage: 0.87 ML, (3 MM/ML 15 VIAL) (SEQ)
     Route: 065
  7. MAGNESIUM SULFATE [Suspect]
     Active Substance: MAGNESIUM SULFATE
     Indication: Product used for unknown indication
     Dosage: 0.28 ML, (4MEQ/ML), 50 VIAL (SEQ 7)
     Route: 065
  8. TRAVASOL [Suspect]
     Active Substance: ALANINE\ARGININE\GLYCINE\HISTIDINE\ISOLEUCINE\LEUCINE\LYSINE HYDROCHLORIDE\METHIONINE\PHENYLALANINE\
     Indication: Product used for unknown indication
     Dosage: 134.54 ML, (200 BAG) (SEQ 5)
     Route: 065

REACTIONS (3)
  - Product dispensing error [Unknown]
  - Incorrect dose administered [Unknown]
  - Circumstance or information capable of leading to medication error [Unknown]
